FAERS Safety Report 9418316 (Version 1)
Quarter: 2013Q3

REPORT INFORMATION
  Report Type: Spontaneous
  Country: ES (occurrence: ES)
  Receive Date: 20130725
  Receipt Date: 20130725
  Transmission Date: 20140515
  Serious: Yes (Hospitalization)
  Sender: FDA-Public Use
  Company Number: ES-AMGEN-ESPSP2013051785

PATIENT
  Age: 35 Year
  Sex: Female

DRUGS (6)
  1. ENBREL [Suspect]
     Indication: ANKYLOSING SPONDYLITIS
     Dosage: 50 MG, WEEKLY
     Route: 065
  2. ARCOXIA [Concomitant]
     Indication: ANALGESIC THERAPY
     Dosage: UNK
  3. ARCOXIA [Concomitant]
     Indication: ANTIINFLAMMATORY THERAPY
     Dosage: UNK UNK, UNK
  4. ARCOXIA [Concomitant]
     Indication: PAIN
     Dosage: UNK UNK, UNK
  5. MYOLASTAN [Concomitant]
     Indication: MUSCLE RELAXANT THERAPY
     Dosage: UNK
  6. MYOLASTAN [Concomitant]
     Indication: PAIN
     Dosage: UNK UNK, UNK

REACTIONS (1)
  - Intervertebral disc protrusion [Recovered/Resolved]
